FAERS Safety Report 6505951-X (Version None)
Quarter: 2009Q4

REPORT INFORMATION
  Report Type: 
  Country: None (occurrence: None)
  Receive Date: 20091218
  Receipt Date: 20091210
  Transmission Date: 20100525
  Serious: Yes (Death, Congenital Anomaly)
  Sender: FDA-Public Use
  Company Number: GB-EISAI INC.-E2090-00895-SOL-GB

PATIENT

DRUGS (4)
  1. ZONEGRAN [Suspect]
     Route: 064
  2. ACETAZOLAMIDE [Suspect]
     Dosage: UNKNOWN
     Route: 064
  3. CARBAMAZEPINE [Suspect]
     Dosage: UNKNOWN
     Route: 064
  4. TOPIRAMATE [Suspect]
     Dosage: UNKNOWN
     Route: 064

REACTIONS (4)
  - DEATH NEONATAL [None]
  - DRUG EXPOSURE DURING PREGNANCY [None]
  - FOETAL GROWTH RETARDATION [None]
  - VOLVULUS OF SMALL BOWEL [None]
